FAERS Safety Report 15748983 (Version 11)
Quarter: 2019Q2

REPORT INFORMATION
  Report Type: Report from Study
  Country: CN (occurrence: CN)
  Receive Date: 20181221
  Receipt Date: 20190530
  Transmission Date: 20190711
  Serious: Yes (Hospitalization)
  Sender: FDA-Public Use
  Company Number: CN-ROCHE-2233392

PATIENT
  Age: 54 Year
  Sex: Male
  Weight: 67 kg

DRUGS (26)
  1. ESTAZOLAM. [Concomitant]
     Active Substance: ESTAZOLAM
     Indication: INSOMNIA
     Route: 048
     Dates: start: 20181213, end: 20181213
  2. LACTULOSE. [Concomitant]
     Active Substance: LACTULOSE
     Indication: CONSTIPATION
     Route: 048
     Dates: start: 20181221, end: 20181226
  3. CARBAZOCHROME [Concomitant]
     Active Substance: CARBAZOCHROME
     Route: 048
     Dates: end: 20181106
  4. CARBAZOCHROME [Concomitant]
     Active Substance: CARBAZOCHROME
     Route: 048
     Dates: start: 20181224, end: 20190217
  5. VITAMIN B6 [Concomitant]
     Active Substance: PYRIDOXINE HYDROCHLORIDE
     Dosage: NUTRITIONAL SUPPLEMENTS
     Route: 042
     Dates: start: 20181229, end: 20181229
  6. COMPOUND PLATYCODON [Concomitant]
     Route: 048
     Dates: start: 20181215, end: 20181216
  7. PARACETAMOL [Concomitant]
     Active Substance: ACETAMINOPHEN
     Indication: PYREXIA
     Route: 048
     Dates: start: 20190123, end: 20190123
  8. INDOMETACIN [Concomitant]
     Active Substance: INDOMETHACIN
     Route: 050
     Dates: start: 20190126, end: 20190126
  9. INDOMETACIN [Concomitant]
     Active Substance: INDOMETHACIN
     Route: 050
     Dates: start: 20190128, end: 20190128
  10. MEROPENEM. [Concomitant]
     Active Substance: MEROPENEM
     Indication: PYREXIA
     Route: 042
     Dates: start: 20190124, end: 20190129
  11. LOXOPROFEN [Concomitant]
     Active Substance: LOXOPROFEN
     Route: 048
     Dates: start: 20181031, end: 20181106
  12. METHYLPREDNISOLONE SODIUM SUCCINATE. [Concomitant]
     Active Substance: METHYLPREDNISOLONE SODIUM SUCCINATE
     Indication: NEPHRITIS
     Route: 042
     Dates: start: 20181211, end: 20181220
  13. OMEPRAZOLE SODIUM [Concomitant]
     Active Substance: OMEPRAZOLE SODIUM
     Indication: PROPHYLAXIS
     Route: 042
     Dates: start: 20181229, end: 20190103
  14. ATEZOLIZUMAB. [Suspect]
     Active Substance: ATEZOLIZUMAB
     Indication: NON-SMALL CELL LUNG CANCER METASTATIC
     Dosage: DATE OF MOST RECENT DOSE OF ATEZOLIZUMAB PRIOR TO SAE/AE ONSET 23/NOV/2018 AT 11:50
     Route: 042
     Dates: start: 20181031
  15. METHYLPREDNISOLONE SODIUM SUCCINATE. [Concomitant]
     Active Substance: METHYLPREDNISOLONE SODIUM SUCCINATE
     Route: 042
     Dates: start: 20190128, end: 20190130
  16. CODEINE PHOSPHATE [Concomitant]
     Active Substance: CODEINE PHOSPHATE
     Route: 048
     Dates: start: 20181220
  17. CEFMINOX SODIUM [Concomitant]
     Active Substance: CEFMINOX SODIUM
     Route: 042
     Dates: start: 20190124, end: 20190124
  18. OMEPRAZOLE. [Concomitant]
     Active Substance: OMEPRAZOLE
     Indication: PROPHYLAXIS
     Route: 048
     Dates: start: 20181212, end: 20190217
  19. COMPOUND PLATYCODON [Concomitant]
     Route: 048
     Dates: start: 20181219, end: 20181219
  20. METHYLPREDNISOLONE. [Concomitant]
     Active Substance: METHYLPREDNISOLONE
     Indication: NEPHRITIS
     Route: 048
     Dates: start: 20181220, end: 20190111
  21. INDOMETACIN [Concomitant]
     Active Substance: INDOMETHACIN
     Indication: PYREXIA
     Route: 050
     Dates: start: 20190123, end: 20190123
  22. CEFMINOX SODIUM [Concomitant]
     Active Substance: CEFMINOX SODIUM
     Indication: PYREXIA
     Route: 042
     Dates: start: 20190124, end: 20190124
  23. METHYLPREDNISOLONE. [Concomitant]
     Active Substance: METHYLPREDNISOLONE
     Route: 048
     Dates: start: 20190111, end: 20190128
  24. METHYLPREDNISOLONE. [Concomitant]
     Active Substance: METHYLPREDNISOLONE
     Route: 048
     Dates: start: 20190131
  25. OMEPRAZOLE SODIUM [Concomitant]
     Active Substance: OMEPRAZOLE SODIUM
     Route: 042
     Dates: start: 20190128, end: 20190129
  26. DIAZEPAM. [Concomitant]
     Active Substance: DIAZEPAM
     Indication: INSOMNIA
     Route: 065
     Dates: start: 20181219, end: 20181219

REACTIONS (2)
  - Bronchial haemorrhage [Recovered/Resolved]
  - Haemoptysis [Recovered/Resolved]

NARRATIVE: CASE EVENT DATE: 20181216
